FAERS Safety Report 20754307 (Version 2)
Quarter: 2023Q2

REPORT INFORMATION
  Report Type: Spontaneous
  Country: US (occurrence: None)
  Receive Date: 20220426
  Receipt Date: 20230420
  Transmission Date: 20230722
  Serious: No
  Sender: FDA-Public Use
  Company Number: US-ROCHE-2919029

PATIENT
  Sex: Male

DRUGS (2)
  1. ESBRIET [Suspect]
     Active Substance: PIRFENIDONE
     Indication: Idiopathic pulmonary fibrosis
     Dosage: ONGOING:YES
     Route: 048
     Dates: start: 20170420
  2. ESBRIET [Suspect]
     Active Substance: PIRFENIDONE
     Dosage: 3 TIMES DAILY
     Route: 048
     Dates: start: 20200309

REACTIONS (4)
  - Decreased appetite [Unknown]
  - Illness [Unknown]
  - Nausea [Unknown]
  - Weight decreased [Unknown]
